FAERS Safety Report 9670675 (Version 2)
Quarter: 2013Q4

REPORT INFORMATION
  Report Type: Spontaneous
  Country: CA (occurrence: CA)
  Receive Date: 20131106
  Receipt Date: 20131119
  Transmission Date: 20140711
  Serious: Yes (Other)
  Sender: FDA-Public Use
  Company Number: CA-PAR PHARMACEUTICAL, INC-2013SCPR007757

PATIENT
  Sex: 0

DRUGS (3)
  1. TRETINOIN [Suspect]
     Indication: ACUTE PROMYELOCYTIC LEUKAEMIA
     Dosage: 45 MG/M2, / DAY
     Route: 048
  2. CYTARABINE [Concomitant]
     Indication: ACUTE PROMYELOCYTIC LEUKAEMIA
     Dosage: 100 MG/M2, / DAY, 7+3 REGIMEN
     Route: 065
  3. DAUNORUBICIN [Concomitant]
     Indication: ACUTE PROMYELOCYTIC LEUKAEMIA
     Dosage: 60 MG/M2, / DAY, 7+3 REGIMEN
     Route: 065

REACTIONS (2)
  - Chorioretinopathy [Recovered/Resolved]
  - Retinoic acid syndrome [Recovered/Resolved]
